FAERS Safety Report 4489390-1 (Version None)
Quarter: 2004Q4

REPORT INFORMATION
  Report Type: 
  Country: None (occurrence: None)
  Receive Date: 20041026
  Receipt Date: 20041013
  Transmission Date: 20050328
  Serious: Yes (Disabling)
  Sender: FDA-Public Use
  Company Number: 2004078744

PATIENT
  Age: 64 Year
  Sex: Male
  Weight: 89 kg

DRUGS (2)
  1. SORTIS (ATORVASTATIN) [Suspect]
     Indication: LIPID METABOLISM DISORDER
     Dosage: 10 MG (10 MG, 1 IN 1 D), ORAL
     Route: 048
     Dates: start: 19990329
  2. LISINOPRIL [Suspect]
     Indication: ESSENTIAL HYPERTENSION
     Dosage: 10 MG (10 MG , 1 IN 1 D), ORAL
     Route: 048
     Dates: start: 20001017, end: 20020911

REACTIONS (3)
  - ANOSMIA [None]
  - ESSENTIAL HYPERTENSION [None]
  - INFLUENZA [None]
